FAERS Safety Report 5333173-7 (Version None)
Quarter: 2007Q2

REPORT INFORMATION
  Report Type: 
  Country: None (occurrence: None)
  Receive Date: 20070521
  Receipt Date: 20070508
  Transmission Date: 20071010
  Serious: No
  Sender: FDA-Public Use
  Company Number: 236032K06USA

PATIENT
  Age: 50 Year
  Sex: Male

DRUGS (1)
  1. REBIF [Suspect]
     Indication: MULTIPLE SCLEROSIS
     Dosage: 44 MCG, 3 IN 1 WEEKS, SUBCUTANEOUS
     Route: 058
     Dates: start: 20060226, end: 20061101

REACTIONS (3)
  - BURNING SENSATION [None]
  - DRUG INTOLERANCE [None]
  - INTERVERTEBRAL DISC COMPRESSION [None]
